FAERS Safety Report 9849126 (Version 1)
Quarter: 2014Q1

REPORT INFORMATION
  Report Type: Spontaneous
  Country: US (occurrence: None)
  Receive Date: 20140127
  Receipt Date: 20140127
  Transmission Date: 20141002
  Serious: Yes (Other)
  Sender: FDA-Public Use
  Company Number: None

PATIENT
  Age: 57 Year
  Sex: Female
  Weight: 41.73 kg

DRUGS (1)
  1. DEBROX EARWAX REMOVAL [Suspect]
     Indication: CERUMEN REMOVAL
     Dosage: INTO THE EAR
     Dates: start: 20140119, end: 20140121

REACTIONS (2)
  - Deafness unilateral [None]
  - Ear discomfort [None]
